FAERS Safety Report 6418688-2 (Version None)
Quarter: 2009Q4

REPORT INFORMATION
  Report Type: 
  Country: None (occurrence: None)
  Receive Date: 20091026
  Receipt Date: 20091013
  Transmission Date: 20100525
  Serious: Yes (Other)
  Sender: FDA-Public Use
  Company Number: ADR39432009

PATIENT
  Age: 60 Year
  Sex: Male

DRUGS (4)
  1. SIMVASTATIN [Suspect]
     Indication: PROPHYLAXIS
     Dosage: 40 MG ORAL
     Route: 048
     Dates: start: 20080829, end: 20080902
  2. DICLOFENAC [Concomitant]
  3. NAPROXEN [Concomitant]
  4. OMEPRAZOLE [Concomitant]

REACTIONS (6)
  - CHILLS [None]
  - DRUG INTOLERANCE [None]
  - MALAISE [None]
  - MYALGIA [None]
  - NAUSEA [None]
  - PAIN [None]
